FAERS Safety Report 5090553-5 (Version None)
Quarter: 2006Q3

REPORT INFORMATION
  Report Type: 
  Country: None (occurrence: None)
  Receive Date: 20060828
  Receipt Date: 20060602
  Transmission Date: 20061208
  Serious: Yes (Hospitalization, Other)
  Sender: FDA-Public Use
  Company Number: US-GLAXOSMITHKLINE-A0607751A

PATIENT
  Age: 47 Year
  Sex: Female
  Weight: 40.9 kg

DRUGS (4)
  1. WELLBUTRIN XL [Suspect]
     Indication: DEPRESSION
     Dosage: 300MG PER DAY
     Route: 048
     Dates: start: 20040223, end: 20060512
  2. BENADRYL [Concomitant]
  3. PREMARIN [Concomitant]
  4. PROGESTIN INJ [Concomitant]

REACTIONS (6)
  - AMNESIA [None]
  - COMA [None]
  - DEHYDRATION [None]
  - POSTICTAL STATE [None]
  - TACHYCARDIA [None]
  - TONIC CONVULSION [None]
